FAERS Safety Report 25233151 (Version 2)
Quarter: 2025Q2

REPORT INFORMATION
  Report Type: Spontaneous
  Country: KZ (occurrence: KZ)
  Receive Date: 20250424
  Receipt Date: 20250519
  Transmission Date: 20250717
  Serious: Yes (Other)
  Sender: NOVARTIS
  Company Number: KZ-002147023-NVSC2025KZ053956

PATIENT
  Age: 35 Year
  Sex: Male

DRUGS (1)
  1. SIPONIMOD [Suspect]
     Active Substance: SIPONIMOD
     Indication: Secondary progressive multiple sclerosis
     Dosage: 0.25 MG, QD (ONCE A DAY AND THEN INCREASING ACCORDING TO THE SCHEME)
     Route: 048
     Dates: start: 20250320

REACTIONS (3)
  - Severe acute respiratory syndrome [Unknown]
  - Gait disturbance [Recovering/Resolving]
  - Pain [Recovered/Resolved]
